FAERS Safety Report 20197992 (Version 2)
Quarter: 2022Q1

REPORT INFORMATION
  Report Type: Spontaneous
  Country: MG (occurrence: MG)
  Receive Date: 20211217
  Receipt Date: 20220103
  Transmission Date: 20220423
  Serious: Yes (Death, Life-Threatening, Hospitalization, Other)
  Sender: FDA-Public Use
  Company Number: MG-Accord-247575

PATIENT
  Age: 30 Year
  Sex: Female

DRUGS (1)
  1. METHOTREXATE [Suspect]
     Active Substance: METHOTREXATE
     Indication: Ectopic pregnancy
     Dosage: 75 MG (1 MG/KG)
     Route: 030
     Dates: start: 20200507

REACTIONS (4)
  - Toxic skin eruption [Fatal]
  - Pancytopenia [Fatal]
  - Hepatic cytolysis [Fatal]
  - Renal failure [Fatal]

NARRATIVE: CASE EVENT DATE: 20200519
